FAERS Safety Report 25619842 (Version 2)
Quarter: 2025Q3

REPORT INFORMATION
  Report Type: Report from Study
  Country: CA (occurrence: CA)
  Receive Date: 20250730
  Receipt Date: 20250912
  Transmission Date: 20251021
  Serious: Yes (Hospitalization, Other)
  Sender: NOVARTIS
  Company Number: CA-002147023-NVSC2025CA119263

PATIENT
  Age: 17 Year
  Sex: Female

DRUGS (1)
  1. COSENTYX [Suspect]
     Active Substance: SECUKINUMAB
     Indication: Juvenile idiopathic arthritis
     Dosage: 150 MG, QMO
     Route: 058
     Dates: start: 20250501

REACTIONS (2)
  - Pneumonia [Recovered/Resolved]
  - Lung consolidation [Unknown]

NARRATIVE: CASE EVENT DATE: 20250722
